FAERS Safety Report 19837908 (Version 1)
Quarter: 2021Q3

REPORT INFORMATION
  Report Type: Spontaneous
  Country: DE (occurrence: DE)
  Receive Date: 20210916
  Receipt Date: 20210916
  Transmission Date: 20211014
  Serious: Yes (Hospitalization)
  Sender: FDA-Public Use
  Company Number: DE-TEVA-2021-DE-1951446

PATIENT
  Age: 62 Year
  Sex: Male
  Weight: 72 kg

DRUGS (9)
  1. AMLODIPIN [Concomitant]
     Active Substance: AMLODIPINE BESYLATE
     Dosage: 5 MILLIGRAM DAILY;  0?0?1?0
  2. HYDROMORPHON [Concomitant]
     Active Substance: HYDROMORPHONE
     Dosage: 1.3 MG, AS NEEDED
  3. TAMSULOSIN [Concomitant]
     Active Substance: TAMSULOSIN
     Dosage: .4 MILLIGRAM DAILY;  1?0?0?0
  4. CITALOPRAM [Concomitant]
     Active Substance: CITALOPRAM HYDROBROMIDE
     Dosage: 30 MILLIGRAM DAILY;  1?0?0?0
  5. HYDROMORPHON [Concomitant]
     Active Substance: HYDROMORPHONE
     Dosage: 8 MILLIGRAM DAILY;  1?0?1?0
  6. MIRTAZAPIN [Concomitant]
     Active Substance: MIRTAZAPINE
     Dosage: 45 MILLIGRAM DAILY; 0?0?0?1
  7. PANTOPRAZOL [Concomitant]
     Active Substance: PANTOPRAZOLE SODIUM
     Dosage: 20 MILLIGRAM DAILY; 1?0?0?0
  8. PREDNISOLON [Suspect]
     Active Substance: PREDNISOLONE
     Dosage: 5 MILLIGRAM DAILY; 1?0?0?0
  9. TORASEMID [Concomitant]
     Active Substance: TORSEMIDE
     Dosage: 5 MILLIGRAM DAILY;  1?0?0?0

REACTIONS (14)
  - Systemic infection [Recovering/Resolving]
  - Pyrexia [Recovering/Resolving]
  - Renal impairment [Recovering/Resolving]
  - Condition aggravated [Recovering/Resolving]
  - Pallor [Recovering/Resolving]
  - Abdominal distension [Recovering/Resolving]
  - Dyspnoea [Recovering/Resolving]
  - Muscular weakness [Recovering/Resolving]
  - Tachycardia [Recovering/Resolving]
  - Anaemia [Recovering/Resolving]
  - Dehydration [Recovering/Resolving]
  - General physical health deterioration [Recovering/Resolving]
  - Diarrhoea [Recovering/Resolving]
  - Tachypnoea [Recovering/Resolving]
